FAERS Safety Report 17570496 (Version 4)
Quarter: 2020Q2

REPORT INFORMATION
  Report Type: Report from Study
  Country: CA (occurrence: CA)
  Receive Date: 20200323
  Receipt Date: 20200528
  Transmission Date: 20200713
  Serious: Yes (Hospitalization, Other)
  Sender: FDA-Public Use
  Company Number: CA-GLAXOSMITHKLINE-CA2020AMR049863

PATIENT
  Sex: Male

DRUGS (1)
  1. MEPOLIZUMAB [Suspect]
     Active Substance: MEPOLIZUMAB
     Indication: ASTHMA
     Dosage: 100 MG, Z (MONTHLY)
     Route: 042
     Dates: start: 20181227

REACTIONS (6)
  - Pneumonia [Unknown]
  - Blood pressure abnormal [Unknown]
  - Asthma [Unknown]
  - Unevaluable event [Unknown]
  - Fatigue [Recovering/Resolving]
  - Blood cholesterol [Unknown]
